FAERS Safety Report 24172644 (Version 1)
Quarter: 2024Q3

REPORT INFORMATION
  Report Type: Spontaneous
  Country: US (occurrence: None)
  Receive Date: 20240804
  Receipt Date: 20240804
  Transmission Date: 20241016
  Serious: No
  Sender: Public
  Company Number: None

PATIENT
  Age: 59 Year
  Sex: Female
  Weight: 96.3 kg

DRUGS (12)
  1. PREDNISONE [Suspect]
     Active Substance: PREDNISONE
     Indication: Postoperative care
     Dosage: OTHER QUANTITY : 2 TABLET(S);?
     Route: 048
     Dates: start: 20240731, end: 20240731
  2. ZOLOFT [Concomitant]
     Active Substance: SERTRALINE HYDROCHLORIDE
  3. zolpidiem [Concomitant]
  4. OMEPRAZOLE [Concomitant]
  5. ALLEGRA [Concomitant]
     Active Substance: FEXOFENADINE HYDROCHLORIDE
  6. multivitamin [Concomitant]
  7. cholestoff plus [Concomitant]
  8. Vitamin D [Concomitant]
  9. KRILL OIL [Concomitant]
  10. MAGNESIUM [Concomitant]
  11. CALCIUM [Concomitant]
  12. zinc combo [Concomitant]

REACTIONS (2)
  - Erythema [None]
  - Urticaria [None]

NARRATIVE: CASE EVENT DATE: 20240731
